FAERS Safety Report 8257848-5 (Version None)
Quarter: 2012Q1

REPORT INFORMATION
  Report Type: 
  Country: None (occurrence: None)
  Receive Date: 20111211
  Receipt Date: 20111028
  Transmission Date: 20120608
  Serious: No
  Sender: FDA-Public Use
  Company Number: 201110078

PATIENT
  Sex: Male

DRUGS (1)
  1. XIAFLEX (CLOSTRIDIAL COLLAGENASE) [Suspect]
     Indication: MUSCLE CONTRACTURE
     Dosage: 0.58 MG, 1 IN 1 D, INTRALESIONAL
     Route: 026
     Dates: start: 20111027, end: 20111027

REACTIONS (2)
  - LACERATION [None]
  - URTICARIA [None]
